FAERS Safety Report 21721654 (Version 2)
Quarter: 2023Q1

REPORT INFORMATION
  Report Type: Spontaneous
  Country: JP (occurrence: JP)
  Receive Date: 20221213
  Receipt Date: 20230331
  Transmission Date: 20230418
  Serious: Yes (Hospitalization)
  Sender: FDA-Public Use
  Company Number: JP-ELI_LILLY_AND_COMPANY-JP202212001418

PATIENT
  Age: 69 Year
  Sex: Female
  Weight: 56.5 kg

DRUGS (4)
  1. VERZENIO [Suspect]
     Active Substance: ABEMACICLIB
     Indication: Breast cancer stage II
     Dosage: UNK
     Route: 048
     Dates: start: 20220622, end: 20221201
  2. ANASTROZOLE [Concomitant]
     Active Substance: ANASTROZOLE
     Indication: Breast cancer stage II
     Dosage: 1 MG, DAILY
     Route: 048
     Dates: start: 20220622
  3. LOPEMIN [BERBERINE HYDROCHLORIDE;ENTEROCOCCUS [Concomitant]
     Indication: Diarrhoea
     Dosage: UNK
     Dates: start: 20220622
  4. MIYA-BM [Concomitant]
     Active Substance: CLOSTRIDIUM BUTYRICUM SPORES STRAIN M-55
     Indication: Diarrhoea

REACTIONS (2)
  - Pulmonary embolism [Recovering/Resolving]
  - Deep vein thrombosis [Recovering/Resolving]

NARRATIVE: CASE EVENT DATE: 20221130
